FAERS Safety Report 5089421-4 (Version None)
Quarter: 2006Q3

REPORT INFORMATION
  Report Type: 
  Country: None (occurrence: None)
  Receive Date: 20060822
  Receipt Date: 20060804
  Transmission Date: 20061208
  Serious: Yes (Hospitalization, Other)
  Sender: FDA-Public Use
  Company Number: ENT 2006-0069

PATIENT
  Age: 62 Year
  Sex: Male

DRUGS (12)
  1. COMTAN [Suspect]
     Indication: PARKINSON'S DISEASE
     Dosage: 1000 MG (200 MG, 5 IN 1 D)
  2. MADOPAR [Suspect]
     Dosage: 62.5 MG
     Dates: start: 20051112
  3. MADOPAR CR [Suspect]
     Dosage: SEE IMAGE
     Dates: start: 20051112
  4. MADOPAR CR [Suspect]
     Dosage: SEE IMAGE
     Dates: start: 20060308
  5. REQUIP [Suspect]
     Dosage: 8 MG (2 MG, 4 IN 1 D)
     Dates: start: 20051112
  6. DETRUSITOL RETARD [Suspect]
     Dosage: 4 MG
     Dates: start: 20051112
  7. SEROQUEL [Suspect]
     Dosage: 150 MG; 200 MG (100  MG, 2 IN 1 D)
     Dates: start: 20060308, end: 20060525
  8. CHLORALDURAT [Suspect]
     Dosage: 500 MG (250 MG, 2 IN 1 D)
     Dates: start: 20060308
  9. TEMESTA [Suspect]
     Dosage: PRN
  10. PROSCAR [Concomitant]
  11. HEPATODORON [Concomitant]
  12. URISPAS [Concomitant]

REACTIONS (5)
  - ANXIETY [None]
  - CONDITION AGGRAVATED [None]
  - HALLUCINATION [None]
  - MUSCULOSKELETAL STIFFNESS [None]
  - NOCTURIA [None]
